FAERS Safety Report 7806409-8 (Version None)
Quarter: 2011Q4

REPORT INFORMATION
  Report Type: 
  Country: None (occurrence: None)
  Receive Date: 20111011
  Receipt Date: 20111003
  Transmission Date: 20120403
  Serious: Yes (Other)
  Sender: FDA-Public Use
  Company Number: JP-BRISTOL-MYERS SQUIBB COMPANY-16143208

PATIENT

DRUGS (3)
  1. ABILIFY [Suspect]
     Indication: SCHIZOPHRENIA
     Dosage: 3 MG:7 DAYS.ALSO 6MG,12MG
     Route: 048
  2. ROHYPNOL [Concomitant]
  3. LORAZEPAM [Concomitant]

REACTIONS (4)
  - HALLUCINATION, AUDITORY [None]
  - DELUSION [None]
  - HALLUCINATION [None]
  - ANXIETY [None]
